FAERS Safety Report 25518427 (Version 1)
Quarter: 2025Q3

REPORT INFORMATION
  Report Type: Spontaneous
  Country: CA (occurrence: CA)
  Receive Date: 20250704
  Receipt Date: 20250704
  Transmission Date: 20251020
  Serious: Yes (Death)
  Sender: TAKEDA
  Company Number: CA-JNJFOC-20250702078

PATIENT

DRUGS (3)
  1. BORTEZOMIB [Suspect]
     Active Substance: BORTEZOMIB
     Indication: Plasma cell myeloma refractory
  2. DEXAMETHASONE [Concomitant]
     Active Substance: DEXAMETHASONE
     Indication: Plasma cell myeloma refractory
  3. LINSITINIB [Concomitant]
     Active Substance: LINSITINIB
     Indication: Plasma cell myeloma refractory

REACTIONS (1)
  - Cardiac disorder [Fatal]
